FAERS Safety Report 9927414 (Version 2)
Quarter: 2014Q1

REPORT INFORMATION
  Report Type: Spontaneous
  Country: US (occurrence: US)
  Receive Date: 20140226
  Receipt Date: 20140226
  Transmission Date: 20141002
  Serious: Yes (Disabling)
  Sender: FDA-Public Use
  Company Number: US-GE HEALTHCARE MEDICAL DIAGNOSTICS-OSCN-PR-0810S-0564

PATIENT
  Age: 36 Year
  Sex: Male

DRUGS (7)
  1. OMNISCAN [Suspect]
     Indication: PRODUCT USED FOR UNKNOWN INDICATION
     Route: 042
     Dates: start: 20050428, end: 20050428
  2. OMNISCAN [Suspect]
     Route: 042
     Dates: start: 20050805, end: 20050805
  3. OMNISCAN [Suspect]
     Route: 042
     Dates: start: 20050811, end: 20050811
  4. OMNISCAN [Suspect]
     Route: 042
     Dates: start: 20050815, end: 20050815
  5. OMNISCAN [Suspect]
     Route: 042
     Dates: start: 20060228, end: 20060228
  6. OMNISCAN [Suspect]
     Route: 042
     Dates: start: 20060710, end: 20060710
  7. MAGNEVIST [Suspect]
     Indication: PRODUCT USED FOR UNKNOWN INDICATION
     Route: 042
     Dates: start: 20040610, end: 20040610

REACTIONS (1)
  - Nephrogenic systemic fibrosis [Not Recovered/Not Resolved]
